FAERS Safety Report 5763855-4 (Version None)
Quarter: 2008Q2

REPORT INFORMATION
  Report Type: 
  Country: None (occurrence: None)
  Receive Date: 20080606
  Receipt Date: 20080606
  Transmission Date: 20081010
  Serious: No
  Sender: FDA-Public Use
  Company Number: None

PATIENT
  Age: 54 Year
  Sex: Female
  Weight: 74.8435 kg

DRUGS (1)
  1. LEVAQUIN [Suspect]
     Indication: SINUSITIS
     Dosage: 750 MG  1 PO
     Route: 048

REACTIONS (4)
  - ABNORMAL DREAMS [None]
  - HEART RATE INCREASED [None]
  - INITIAL INSOMNIA [None]
  - INSOMNIA [None]
